FAERS Safety Report 6703950-6 (Version None)
Quarter: 2010Q2

REPORT INFORMATION
  Report Type: 
  Country: None (occurrence: None)
  Receive Date: 20100430
  Receipt Date: 20100422
  Transmission Date: 20101027
  Serious: Yes (Death)
  Sender: FDA-Public Use
  Company Number: DE-PFIZER INC-2010051015

PATIENT
  Age: 73 Year
  Sex: Female

DRUGS (5)
  1. IRINOTECAN HCL [Suspect]
     Indication: COLORECTAL CANCER METASTATIC
     Dosage: 284.4 MG, EVERY 2 WEEKS
     Route: 042
     Dates: start: 20100420
  2. AVASTIN [Suspect]
     Indication: COLORECTAL CANCER METASTATIC
     Dosage: 275 MG, EVERY 2 WEEKS
     Route: 042
     Dates: start: 20100419
  3. FLUOROURACIL [Suspect]
     Indication: COLORECTAL CANCER METASTATIC
     Dosage: 3792 MG, EVERY 2 WEEKS
     Route: 042
     Dates: start: 20100420
  4. FLUOROURACIL [Suspect]
     Dosage: 632 MG, EVERY 2 WEEKS
     Route: 040
     Dates: start: 20100420
  5. FOLINIC ACID [Suspect]
     Indication: COLORECTAL CANCER METASTATIC
     Dosage: 700 MG, EVERY 2 WEEKS
     Route: 042
     Dates: start: 20100420

REACTIONS (1)
  - DEATH [None]
